FAERS Safety Report 14873496 (Version 1)
Quarter: 2018Q2

REPORT INFORMATION
  Report Type: Spontaneous
  Country: US (occurrence: US)
  Receive Date: 20180424
  Receipt Date: 20180424
  Transmission Date: 20180711
  Serious: No
  Sender: FDA-Public Use
  Company Number: None

PATIENT
  Age: 49 Year
  Sex: Female

DRUGS (1)
  1. HUMIRA [Suspect]
     Active Substance: ADALIMUMAB
     Indication: RASH PAPULOSQUAMOUS
     Route: 058
     Dates: start: 20171025

REACTIONS (2)
  - Tinnitus [None]
  - Fatigue [None]

NARRATIVE: CASE EVENT DATE: 20180401
